FAERS Safety Report 24997072 (Version 2)
Quarter: 2025Q4

REPORT INFORMATION
  Report Type: Report from Study
  Country: US (occurrence: US)
  Receive Date: 20250221
  Receipt Date: 20251231
  Transmission Date: 20260118
  Serious: No
  Sender: MERCK SHARP & DOHME LLC
  Company Number: US-009507513-2254262

PATIENT
  Sex: Female

DRUGS (16)
  1. WINREVAIR [Suspect]
     Active Substance: SOTATERCEPT-CSRK
     Indication: Pulmonary arterial hypertension
     Dosage: 0.4ML EVERY 3 WEEKS
     Route: 058
     Dates: start: 20250124, end: 202503
  2. WINREVAIR [Suspect]
     Active Substance: SOTATERCEPT-CSRK
     Dosage: UNK
     Dates: start: 20251210
  3. WINREVAIR [Suspect]
     Active Substance: SOTATERCEPT-CSRK
  4. WINREVAIR [Suspect]
     Active Substance: SOTATERCEPT-CSRK
  5. TYVASO DPI [Suspect]
     Active Substance: TREPROSTINIL
     Indication: Pulmonary arterial hypertension
     Dosage: 48 UG, FOUR TIMES A DAY, DELIVERED BY TYVASO DRY POWDER INHALER; CONCENTRATION OF 48 UG
     Route: 055
  6. TYVASO DPI [Suspect]
     Active Substance: TREPROSTINIL
     Indication: Pulmonary arterial hypertension
     Dosage: UNK, DELIVERED BY TYVASO DRY POWDER INHALER; CONCENTRATION OF 48 UG
     Route: 055
     Dates: start: 202402
  7. ZOFRAN [Concomitant]
     Active Substance: ONDANSETRON HYDROCHLORIDE
  8. VITAMINS [Concomitant]
     Active Substance: VITAMINS
  9. VITAMIN C [Concomitant]
     Active Substance: ASCORBIC ACID
  10. PANTOPRAZOLE [Concomitant]
     Active Substance: PANTOPRAZOLE
  11. NEBIVOLOL [Concomitant]
     Active Substance: NEBIVOLOL
  12. TORSEMIDE [Concomitant]
     Active Substance: TORSEMIDE
  13. ROSUVASTATIN [Concomitant]
     Active Substance: ROSUVASTATIN
  14. ANASTROZOLE [Concomitant]
     Active Substance: ANASTROZOLE
  15. ALBUTEROL [Concomitant]
     Active Substance: ALBUTEROL
  16. TRELEGY ELLIPTA [Concomitant]
     Active Substance: FLUTICASONE FUROATE\UMECLIDINIUM BROMIDE\VILANTEROL TRIFENATATE

REACTIONS (6)
  - Nausea [Recovered/Resolved]
  - Blood test abnormal [Recovered/Resolved]
  - Device physical property issue [Unknown]
  - Device issue [Unknown]
  - Device leakage [Unknown]
  - Headache [Unknown]

NARRATIVE: CASE EVENT DATE: 20250101
